FAERS Safety Report 9408288 (Version 1)
Quarter: 2013Q3

REPORT INFORMATION
  Report Type: Spontaneous
  Country: DE (occurrence: DE)
  Receive Date: 20130718
  Receipt Date: 20130718
  Transmission Date: 20140515
  Serious: Yes (Congenital Anomaly)
  Sender: FDA-Public Use
  Company Number: GXKR2013DE002421

PATIENT
  Sex: 0

DRUGS (1)
  1. CEFUHEXAL [Suspect]
     Dosage: MATERNAL DOSE: UNK MG, UNK
     Route: 064

REACTIONS (2)
  - Amniotic band syndrome [Not Recovered/Not Resolved]
  - Limb reduction defect [Not Recovered/Not Resolved]
